FAERS Safety Report 5902608-0 (Version None)
Quarter: 2008Q3

REPORT INFORMATION
  Report Type: 
  Country: None (occurrence: None)
  Receive Date: 20080926
  Receipt Date: 20080912
  Transmission Date: 20090109
  Serious: Yes (Other)
  Sender: FDA-Public Use
  Company Number: 8037051

PATIENT
  Sex: Male

DRUGS (1)
  1. XYZAL [Suspect]

REACTIONS (7)
  - AMNESIA [None]
  - FATIGUE [None]
  - HYPERHIDROSIS [None]
  - HYPERTENSION [None]
  - PARAESTHESIA [None]
  - PHARYNGEAL OEDEMA [None]
  - PYREXIA [None]
